FAERS Safety Report 24684268 (Version 1)
Quarter: 2024Q4

REPORT INFORMATION
  Report Type: Spontaneous
  Country: FR (occurrence: FR)
  Receive Date: 20241202
  Receipt Date: 20241202
  Transmission Date: 20250114
  Serious: Yes (Death, Life-Threatening, Hospitalization, Disabling, Other)
  Sender: SANDOZ
  Company Number: FR-PFM-2021-10330

PATIENT
  Age: 58 Year
  Sex: Female

DRUGS (3)
  1. BUSULFAN [Suspect]
     Active Substance: BUSULFAN
     Indication: Autologous haematopoietic stem cell transplant
     Dosage: 8 MG/KG, UNK
     Route: 042
     Dates: start: 20190325
  2. CYCLOPHOSPHAMIDE [Suspect]
     Active Substance: CYCLOPHOSPHAMIDE
     Indication: Autologous haematopoietic stem cell transplant
     Dosage: UNK
     Route: 065
  3. THIOTEPA [Suspect]
     Active Substance: THIOTEPA
     Indication: Autologous haematopoietic stem cell transplant
     Dosage: UNK
     Route: 042
     Dates: start: 20190325

REACTIONS (2)
  - Pulmonary arterial hypertension [Fatal]
  - Right ventricular failure [Unknown]

NARRATIVE: CASE EVENT DATE: 20190714
